FAERS Safety Report 4604452-3 (Version None)
Quarter: 2005Q2

REPORT INFORMATION
  Report Type: 
  Country: None (occurrence: None)
  Receive Date: 20050223
  Receipt Date: 20050102
  Transmission Date: 20051028
  Serious: No
  Sender: FDA-Public Use
  Company Number: PHEH2005US00488

PATIENT
  Sex: Female

DRUGS (1)
  1. ZELNORM [Suspect]
     Dosage: UP TO FOUR 6MG DAILY

REACTIONS (3)
  - ABDOMINAL TENDERNESS [None]
  - CHEST WALL PAIN [None]
  - FLATULENCE [None]
